FAERS Safety Report 5001762-5 (Version None)
Quarter: 2006Q2

REPORT INFORMATION
  Report Type: 
  Country: None (occurrence: None)
  Receive Date: 20060515
  Receipt Date: 20060503
  Transmission Date: 20061013
  Serious: Yes (Other)
  Sender: FDA-Public Use
  Company Number: GB-JNJFOC-20060401204

PATIENT
  Sex: Male
  Weight: 79 kg

DRUGS (25)
  1. SPORANOX [Suspect]
     Indication: RASH
     Route: 048
     Dates: start: 20060318, end: 20060331
  2. AMLODIPINE [Concomitant]
     Route: 048
  3. PIRITON [Concomitant]
     Route: 048
  4. SALBUTAMOL [Concomitant]
     Route: 055
  5. SUSTANON 250 [Concomitant]
     Route: 065
  6. SUSTANON 250 [Concomitant]
     Route: 065
  7. SUSTANON 250 [Concomitant]
     Route: 065
  8. SUSTANON 250 [Concomitant]
     Route: 065
  9. RAMIPRIL [Concomitant]
     Route: 048
  10. MONTELUKAST SODIUM [Concomitant]
     Route: 048
  11. BENDROFLUMETHIAZIDE [Concomitant]
     Route: 048
  12. SYMBICORT [Concomitant]
     Route: 055
  13. SYMBICORT [Concomitant]
     Dosage: 400/12 MICROGRAMS/INHALATION
     Route: 055
  14. CALCICHEW [Concomitant]
     Route: 048
  15. IPRATROPIUM BROMIDE [Concomitant]
     Dosage: 20 MICROGRAMS/ACTUATION  1-2 PUFFS
     Route: 055
  16. SOFT WHITE PARAFFIN [Concomitant]
     Dosage: APPLY AS OFTEN AS POSSIBLE
     Route: 065
  17. CAPASAL [Concomitant]
     Route: 061
  18. CAPASAL [Concomitant]
     Route: 061
  19. CAPASAL [Concomitant]
     Route: 061
  20. OILATUM PLUS BATH EMOLLIENT [Concomitant]
     Route: 065
  21. OILATUM PLUS BATH EMOLLIENT [Concomitant]
     Route: 065
  22. BETAMETHASONE VALERATE [Concomitant]
     Dosage: SCALP APPLICATION
     Route: 061
  23. LANSOPRAZOLE [Concomitant]
     Route: 048
  24. HYDROCORTISONE [Concomitant]
     Indication: RASH
     Route: 061
  25. MICONAZOLE [Concomitant]
     Indication: RASH
     Route: 061

REACTIONS (4)
  - FATIGUE [None]
  - JOINT SWELLING [None]
  - PARAESTHESIA [None]
  - VISION BLURRED [None]
